FAERS Safety Report 23258481 (Version 1)
Quarter: 2023Q4

REPORT INFORMATION
  Report Type: Spontaneous
  Country: US (occurrence: US)
  Receive Date: 20231204
  Receipt Date: 20231204
  Transmission Date: 20240110
  Serious: No
  Sender: FDA-Public Use
  Company Number: US-SA-SAC20231124001129

PATIENT
  Sex: Female
  Weight: 69.8 kg

DRUGS (25)
  1. DUPIXENT [Suspect]
     Active Substance: DUPILUMAB
     Indication: Asthma
     Dosage: 300 MG, QOW
     Route: 058
  2. VALTREX [Concomitant]
     Active Substance: VALACYCLOVIR HYDROCHLORIDE
  3. QULIPTA [Concomitant]
     Active Substance: ATOGEPANT
  4. KETOROLAC TROMETHAMINE [Concomitant]
     Active Substance: KETOROLAC TROMETHAMINE
  5. ARMOUR THYROID [Concomitant]
     Active Substance: THYROID, PORCINE
  6. FIORICET [Concomitant]
     Active Substance: ACETAMINOPHEN\BUTALBITAL\CAFFEINE
  7. XANAX [Concomitant]
     Active Substance: ALPRAZOLAM
  8. TRELEGY ELLIPTA [Concomitant]
     Active Substance: FLUTICASONE FUROATE\UMECLIDINIUM BROMIDE\VILANTEROL TRIFENATATE
  9. BEE POLLEN [Concomitant]
     Active Substance: BEE POLLEN
  10. CALCIUM [Concomitant]
     Active Substance: CALCIUM
  11. VITAMIN D3 [Concomitant]
     Active Substance: CHOLECALCIFEROL
  12. PROMETHAZINE HYDROCHLORIDE [Concomitant]
     Active Substance: PROMETHAZINE HYDROCHLORIDE
  13. SINGULAIR [Concomitant]
     Active Substance: MONTELUKAST SODIUM
  14. ROSUVASTATIN CALCIUM [Concomitant]
     Active Substance: ROSUVASTATIN CALCIUM
  15. TRAMADOL HCL [Concomitant]
     Active Substance: TRAMADOL HYDROCHLORIDE
  16. HYDROXYZINE HYDROCHLORIDE [Concomitant]
     Active Substance: HYDROXYZINE HYDROCHLORIDE
  17. ZOMIG [Concomitant]
     Active Substance: ZOLMITRIPTAN
  18. DEXAMETHASONE [Concomitant]
     Active Substance: DEXAMETHASONE
  19. AIMOVIG [Concomitant]
     Active Substance: ERENUMAB-AOOE
  20. DICLOFENAC SODIUM [Concomitant]
     Active Substance: DICLOFENAC\DICLOFENAC SODIUM
  21. PROVENTIL HFA [SALBUTAMOL] [Concomitant]
  22. GABAPENTIN [Concomitant]
     Active Substance: GABAPENTIN
  23. TIZANIDINE HYDROCHLORIDE [Concomitant]
     Active Substance: TIZANIDINE HYDROCHLORIDE
  24. TROKENDI XR [Concomitant]
     Active Substance: TOPIRAMATE
     Dosage: 200MG QD
  25. MAGNESIUM [Concomitant]
     Active Substance: MAGNESIUM

REACTIONS (2)
  - Procedural pain [Unknown]
  - Nervous system disorder [Unknown]
